FAERS Safety Report 6436536-1 (Version None)
Quarter: 2009Q4

REPORT INFORMATION
  Report Type: 
  Country: None (occurrence: None)
  Receive Date: 20091111
  Receipt Date: 20091105
  Transmission Date: 20100525
  Serious: Yes (Hospitalization)
  Sender: FDA-Public Use
  Company Number: US-GENENTECH-290959

PATIENT
  Sex: Female
  Weight: 140.14 kg

DRUGS (15)
  1. XOLAIR [Suspect]
     Indication: ASTHMA
     Dosage: 300 MG, Q2W
     Route: 058
     Dates: start: 20080313, end: 20090826
  2. ALLEGRA D 24 HOUR [Concomitant]
     Indication: DRUG USE FOR UNKNOWN INDICATION
  3. ADVAIR DISKUS 100/50 [Concomitant]
     Indication: DRUG USE FOR UNKNOWN INDICATION
     Dosage: 250 UNK, UNK
  4. ASTELIN [Concomitant]
     Indication: DRUG USE FOR UNKNOWN INDICATION
  5. NASONEX [Concomitant]
     Indication: DRUG USE FOR UNKNOWN INDICATION
  6. ZYFLO [Concomitant]
     Indication: DRUG USE FOR UNKNOWN INDICATION
     Dosage: 600 MG, BID
  7. FISH OIL [Concomitant]
     Indication: DRUG USE FOR UNKNOWN INDICATION
  8. CALCIUM [Concomitant]
     Indication: DRUG USE FOR UNKNOWN INDICATION
  9. VITAMIN D [Concomitant]
     Indication: DRUG USE FOR UNKNOWN INDICATION
  10. PREVACID [Concomitant]
     Indication: DRUG USE FOR UNKNOWN INDICATION
  11. EFFEXOR [Concomitant]
     Indication: DRUG USE FOR UNKNOWN INDICATION
     Dosage: 37 MG, UNK
  12. ZOLOFT [Concomitant]
     Indication: DRUG USE FOR UNKNOWN INDICATION
     Dosage: 100 MG, UNK
  13. RANITIDINE [Concomitant]
     Indication: DRUG USE FOR UNKNOWN INDICATION
     Dosage: 300 MG, UNK
  14. COUMADIN [Concomitant]
     Indication: DRUG USE FOR UNKNOWN INDICATION
     Dosage: 7 MG, UNK
  15. GLUCOSAMINE [Concomitant]
     Indication: DRUG USE FOR UNKNOWN INDICATION

REACTIONS (2)
  - PULMONARY EMBOLISM [None]
  - THROMBOSIS [None]
